FAERS Safety Report 10099267 (Version 1)
Quarter: 2014Q2

REPORT INFORMATION
  Report Type: Spontaneous
  Country: US (occurrence: US)
  Receive Date: 20140423
  Receipt Date: 20140423
  Transmission Date: 20141212
  Serious: No
  Sender: FDA-Public Use
  Company Number: US-PFIZER INC-2014111834

PATIENT
  Sex: Female

DRUGS (2)
  1. XELJANZ [Suspect]
     Dosage: UNK
  2. PREMARIN [Suspect]
     Dosage: 0.15 MG, UNK

REACTIONS (4)
  - Vaginal discharge [Unknown]
  - Weight increased [Unknown]
  - Breast tenderness [Unknown]
  - Hot flush [Unknown]
